FAERS Safety Report 10951083 (Version 1)
Quarter: 2015Q1

REPORT INFORMATION
  Report Type: Spontaneous
  Country: US (occurrence: None)
  Receive Date: 20150226
  Receipt Date: 20150226
  Transmission Date: 20150721
  Serious: Yes (Other)
  Sender: FDA-Public Use
  Company Number: TPA2008A02018

PATIENT
  Age: 50 Year
  Sex: Male

DRUGS (13)
  1. MYCOPHENOLATE MOFETIL. [Concomitant]
     Active Substance: MYCOPHENOLATE MOFETIL
  2. GLIMEPIRIDE (GLIMEPIRIDE) [Suspect]
     Active Substance: GLIMEPIRIDE
     Indication: TYPE 2 DIABETES MELLITUS
     Dosage: 1 IN 1 D
  3. ESOMEPRAZOLE [Concomitant]
     Active Substance: ESOMEPRAZOLE
  4. CLONIDINE. [Concomitant]
     Active Substance: CLONIDINE
  5. AMLODIPINE [Concomitant]
     Active Substance: AMLODIPINE BESYLATE
  6. LAMOTRIGINE. [Concomitant]
     Active Substance: LAMOTRIGINE
  7. TACROLILMUS (TACROLIMUS) [Concomitant]
  8. ACETYLSALICYLIC ACID [Concomitant]
     Active Substance: ASPIRIN
  9. RISPERIDONE. [Concomitant]
     Active Substance: RISPERIDONE
  10. BACTERIUN (ALL OTHER THERAPEUTIC PRODUCTS) [Concomitant]
  11. ACTOS [Suspect]
     Active Substance: PIOGLITAZONE HYDROCHLORIDE
     Route: 048
  12. JANUVIA [Suspect]
     Active Substance: SITAGLIPTIN PHOSPHATE
  13. TAMSULOSIN [Concomitant]
     Active Substance: TAMSULOSIN

REACTIONS (2)
  - Blood glucose increased [None]
  - Tremor [None]

NARRATIVE: CASE EVENT DATE: 20081017
